FAERS Safety Report 16019235 (Version 3)
Quarter: 2019Q2

REPORT INFORMATION
  Report Type: Spontaneous
  Country: US (occurrence: US)
  Receive Date: 20190228
  Receipt Date: 20190430
  Transmission Date: 20190711
  Serious: Yes (Other)
  Sender: FDA-Public Use
  Company Number: US-ASTRAZENECA-2018SF34781

PATIENT
  Age: 24788 Day
  Sex: Female

DRUGS (16)
  1. ZOFRAN [Concomitant]
     Active Substance: ONDANSETRON HYDROCHLORIDE
  2. NEXIUM 24HR [Suspect]
     Active Substance: ESOMEPRAZOLE MAGNESIUM
     Route: 048
  3. PANTOPRAZOLE [Concomitant]
     Active Substance: PANTOPRAZOLE
  4. PREVACID [Suspect]
     Active Substance: LANSOPRAZOLE
     Route: 065
  5. PREVACID 24 HR [Suspect]
     Active Substance: LANSOPRAZOLE
     Route: 065
  6. IBUPROFEN. [Concomitant]
     Active Substance: IBUPROFEN
  7. NEXIUM [Suspect]
     Active Substance: ESOMEPRAZOLE MAGNESIUM
     Route: 048
     Dates: start: 20150114, end: 20160309
  8. NEXIUM [Suspect]
     Active Substance: ESOMEPRAZOLE MAGNESIUM
     Route: 048
  9. AMLODIPINE [Concomitant]
     Active Substance: AMLODIPINE BESYLATE
  10. NEXIUM [Suspect]
     Active Substance: ESOMEPRAZOLE MAGNESIUM
     Route: 048
     Dates: start: 201501, end: 201603
  11. PRILOSEC OTC [Suspect]
     Active Substance: OMEPRAZOLE MAGNESIUM
     Route: 048
  12. LISINOPRIL. [Concomitant]
     Active Substance: LISINOPRIL
  13. GABAPENTIN. [Concomitant]
     Active Substance: GABAPENTIN
  14. PRILOSEC [Suspect]
     Active Substance: OMEPRAZOLE MAGNESIUM
     Route: 048
  15. LIPITOR [Concomitant]
     Active Substance: ATORVASTATIN CALCIUM
  16. BUPROPION. [Concomitant]
     Active Substance: BUPROPION

REACTIONS (3)
  - Renal injury [Unknown]
  - Chronic kidney disease [Unknown]
  - Renal failure [Unknown]

NARRATIVE: CASE EVENT DATE: 20161014
